FAERS Safety Report 21371099 (Version 1)
Quarter: 2022Q3

REPORT INFORMATION
  Report Type: Spontaneous
  Country: US (occurrence: None)
  Receive Date: 20220922
  Receipt Date: 20220922
  Transmission Date: 20221027
  Serious: No
  Sender: FDA-Public Use
  Company Number: None

PATIENT
  Sex: Male

DRUGS (1)
  1. CAPECITABINE [Suspect]
     Active Substance: CAPECITABINE
     Dosage: 1000 MG BID ORAL
     Route: 048

REACTIONS (5)
  - Fall [None]
  - Product dose omission issue [None]
  - COVID-19 [None]
  - Hyperglycaemia [None]
  - Incoherent [None]
